FAERS Safety Report 18769453 (Version 5)
Quarter: 2021Q2

REPORT INFORMATION
  Report Type: Spontaneous
  Country: US (occurrence: US)
  Receive Date: 20210121
  Receipt Date: 20210506
  Transmission Date: 20210717
  Serious: Yes (Life-Threatening, Hospitalization)
  Sender: FDA-Public Use
  Company Number: US-ELI_LILLY_AND_COMPANY-US202101007423

PATIENT
  Age: 21 Year
  Sex: Female
  Weight: 246.6 kg

DRUGS (5)
  1. HEPARIN [Concomitant]
     Active Substance: HEPARIN SODIUM
     Indication: COVID-19
     Dosage: UNK UNK, UNKNOWN (DRIP)
     Route: 065
     Dates: start: 20201209, end: 20201221
  2. HEPARIN [Concomitant]
     Active Substance: HEPARIN SODIUM
     Dosage: REPORETD AS 7500 SUBQ, TID
     Route: 058
     Dates: start: 20201221, end: 20201226
  3. BARICITINIB. [Suspect]
     Active Substance: BARICITINIB
     Indication: COVID-19
     Dosage: 4 MG, DAILY
     Route: 048
     Dates: start: 20201208, end: 20201215
  4. REMDESIVIR. [Concomitant]
     Active Substance: REMDESIVIR
     Indication: COVID-19
     Dosage: UNK UNK, UNKNOWN
     Route: 065
     Dates: start: 20201207, end: 20201212
  5. DECADRON [Concomitant]
     Active Substance: DEXAMETHASONE
     Indication: COVID-19
     Dosage: UNK UNK, UNKNOWN
     Route: 065
     Dates: start: 20201207, end: 20201228

REACTIONS (4)
  - Diabetes insipidus [Unknown]
  - Deep vein thrombosis [Recovered/Resolved]
  - Respiratory distress [Recovered/Resolved]
  - Pneumococcal infection [Recovered/Resolved]

NARRATIVE: CASE EVENT DATE: 20201208
